FAERS Safety Report 17928653 (Version 1)
Quarter: 2020Q2

REPORT INFORMATION
  Report Type: Spontaneous
  Country: GB (occurrence: GB)
  Receive Date: 20200623
  Receipt Date: 20200623
  Transmission Date: 20200714
  Serious: Yes (Other)
  Sender: FDA-Public Use
  Company Number: GB-BRISTOL-MYERS SQUIBB COMPANY-BMS-2020-049659

PATIENT
  Age: 67 Year
  Sex: Male
  Weight: 83 kg

DRUGS (2)
  1. APIXABAN [Concomitant]
     Active Substance: APIXABAN
     Indication: PRODUCT USED FOR UNKNOWN INDICATION
     Dosage: UNK
     Route: 065
  2. OPDIVO [Suspect]
     Active Substance: NIVOLUMAB
     Indication: RENAL CANCER METASTATIC
     Dosage: AS PER MANUFACTURER INSTRUCTIONS
     Route: 051
     Dates: start: 20190401

REACTIONS (5)
  - Sleep disorder [Not Recovered/Not Resolved]
  - Nasal mucosal discolouration [Unknown]
  - Increased viscosity of upper respiratory secretion [Unknown]
  - Dyspnoea [Unknown]
  - Sinonasal obstruction [Not Recovered/Not Resolved]

NARRATIVE: CASE EVENT DATE: 20190401
